FAERS Safety Report 18767260 (Version 1)
Quarter: 2021Q1

REPORT INFORMATION
  Report Type: Spontaneous
  Country: US (occurrence: US)
  Receive Date: 20210121
  Receipt Date: 20210121
  Transmission Date: 20210419
  Serious: No
  Sender: FDA-Public Use
  Company Number: None

PATIENT
  Age: 10 Year
  Sex: Female
  Weight: 31.05 kg

DRUGS (1)
  1. SHEFFIELD ARTHRITIS AND MUSCLE PAIN RELIEF [Suspect]
     Active Substance: CAPSICUM OLEORESIN
     Indication: MYALGIA
     Dosage: ?          QUANTITY:43 1.5OZ;?
     Route: 061
     Dates: start: 20210119, end: 20210120

REACTIONS (2)
  - Blister [None]
  - Crying [None]

NARRATIVE: CASE EVENT DATE: 20210119
